FAERS Safety Report 7886563-2 (Version None)
Quarter: 2011Q4

REPORT INFORMATION
  Report Type: 
  Country: None (occurrence: None)
  Receive Date: 20111102
  Receipt Date: 20110707
  Transmission Date: 20120403
  Serious: No
  Sender: FDA-Public Use
  Company Number: US-AMGEN-USASP2011034498

PATIENT
  Age: 60 Year
  Sex: Female
  Weight: 82.54 kg

DRUGS (10)
  1. AMLODIPINE [Concomitant]
     Dosage: 10 MG, UNK
     Route: 048
  2. NEXIUM [Concomitant]
     Dosage: 20 MG, UNK
     Route: 048
  3. ENBREL [Suspect]
     Indication: PRODUCT USED FOR UNKNOWN INDICATION
     Dosage: 50 MG, QWK
     Route: 058
  4. CARBIDOPA AND LEVODOPA [Concomitant]
     Dosage: 100 MG, UNK
     Route: 048
  5. NEURONTIN [Concomitant]
     Dosage: 300 MG, UNK
     Route: 048
  6. ACETAMINOPHEN AND HYDROCODONE BITARTRATE [Concomitant]
     Route: 048
  7. CLONAZEPAM [Concomitant]
     Dosage: .5 MG, UNK
     Route: 048
  8. CELEXA [Concomitant]
     Dosage: 40 MG, UNK
     Route: 048
  9. METOPROLOL TARTRATE [Concomitant]
     Dosage: 100 MG, UNK
     Route: 048
  10. ARAVA [Concomitant]
     Dosage: 10 MG, UNK
     Route: 048

REACTIONS (1)
  - PULMONARY MASS [None]
